FAERS Safety Report 7831361-9 (Version None)
Quarter: 2011Q4

REPORT INFORMATION
  Report Type: 
  Country: None (occurrence: None)
  Receive Date: 20111021
  Receipt Date: 20111017
  Transmission Date: 20120403
  Serious: Yes (Death, Other)
  Sender: FDA-Public Use
  Company Number: KR-ELI_LILLY_AND_COMPANY-KR201110005268

PATIENT

DRUGS (3)
  1. CISPLATIN [Concomitant]
     Dosage: 25 MG/M2, DAY1 AND 8 OF 21 DAY CYCLE
  2. ERLOTINIB HYDROCHLORIDE [Concomitant]
     Dosage: 100 MG, QD
  3. GEMCITABINE HYDROCHLORIDE [Suspect]
     Indication: PANCREATIC CARCINOMA NON-RESECTABLE

REACTIONS (1)
  - DEATH [None]
